FAERS Safety Report 4560407-9 (Version None)
Quarter: 2005Q1

REPORT INFORMATION
  Report Type: 
  Country: None (occurrence: None)
  Receive Date: 20050125
  Receipt Date: 20050114
  Transmission Date: 20050727
  Serious: Yes (Hospitalization)
  Sender: FDA-Public Use
  Company Number: US-MERCK-0501USA02948

PATIENT
  Age: 44 Year
  Sex: Female

DRUGS (1)
  1. DECADRON [Suspect]
     Route: 048

REACTIONS (5)
  - BRADYCARDIA [None]
  - HYPERTENSION [None]
  - MYOCARDIAL INFARCTION [None]
  - PHAEOCHROMOCYTOMA [None]
  - RETROPERITONEAL HAEMORRHAGE [None]
